FAERS Safety Report 24705086 (Version 1)
Quarter: 2024Q4

REPORT INFORMATION
  Report Type: Spontaneous
  Country: HR (occurrence: HR)
  Receive Date: 20241206
  Receipt Date: 20241206
  Transmission Date: 20250115
  Serious: Yes (Other)
  Sender: TEVA
  Company Number: None

PATIENT
  Age: 44 Year
  Sex: Female

DRUGS (1)
  1. PREGABALIN [Suspect]
     Active Substance: PREGABALIN
     Indication: Product used for unknown indication
     Dosage: AN EMPTY PREGABALIN 75 MG BLISTER CONTAINING 7 TABLETS WAS FOUND WITH HER.
     Route: 048
     Dates: start: 20241012, end: 20241012

REACTIONS (4)
  - Suicide attempt [Unknown]
  - Oxygen saturation decreased [Unknown]
  - Intentional overdose [Unknown]
  - Loss of consciousness [Unknown]

NARRATIVE: CASE EVENT DATE: 20241012
